FAERS Safety Report 21437112 (Version 3)
Quarter: 2023Q2

REPORT INFORMATION
  Report Type: Spontaneous
  Country: JP (occurrence: JP)
  Receive Date: 20221010
  Receipt Date: 20230518
  Transmission Date: 20230721
  Serious: Yes (Other)
  Sender: FDA-Public Use
  Company Number: JP-OTSUKA-2022_038570

PATIENT
  Age: 6 Decade

DRUGS (1)
  1. ICLUSIG [Suspect]
     Active Substance: PONATINIB
     Indication: Chronic myeloid leukaemia
     Dosage: 15 MILLIGRAM, QD
     Route: 048
     Dates: start: 202204, end: 202206

REACTIONS (1)
  - Myelosuppression [Unknown]

NARRATIVE: CASE EVENT DATE: 20220101
